FAERS Safety Report 7135819-X (Version None)
Quarter: 2010Q4

REPORT INFORMATION
  Report Type: 
  Country: None (occurrence: None)
  Receive Date: 20101203
  Receipt Date: 20101111
  Transmission Date: 20110411
  Serious: Yes (Hospitalization, Disabling, Other)
  Sender: FDA-Public Use
  Company Number: DE-AMGEN-US393917

PATIENT

DRUGS (8)
  1. ENBREL [Suspect]
     Indication: SPONDYLITIS
     Dosage: 25 MG, QWK
     Route: 058
     Dates: start: 20090625, end: 20100117
  2. ENBREL [Suspect]
     Dosage: 50 MG, QWK
     Route: 058
     Dates: start: 20100118, end: 20100131
  3. ENBREL [Suspect]
     Dosage: 25 MG, QWK
     Route: 058
     Dates: start: 20100201, end: 20100101
  4. DECORTIN-H                         /00016201/ [Concomitant]
     Dosage: UNK UNK, UNK
  5. METEX                              /00113802/ [Concomitant]
     Dosage: 25 MG, UNK
  6. CELEBREX [Concomitant]
  7. OMEPRAZOLE [Concomitant]
  8. FOLSAN [Concomitant]

REACTIONS (18)
  - C-REACTIVE PROTEIN INCREASED [None]
  - CONDITION AGGRAVATED [None]
  - DRUG EFFECT DECREASED [None]
  - DYSHIDROSIS [None]
  - GENERAL PHYSICAL HEALTH DETERIORATION [None]
  - HAEMATOMA [None]
  - LUMBAR VERTEBRAL FRACTURE [None]
  - MONOCLONAL GAMMOPATHY [None]
  - MUSCLE TWITCHING [None]
  - NEURALGIA [None]
  - PAIN IN EXTREMITY [None]
  - PLASMACYTOMA [None]
  - PRODUCT QUALITY ISSUE [None]
  - RASH PUSTULAR [None]
  - SPONDYLITIS [None]
  - SUPERINFECTION BACTERIAL [None]
  - THORACIC VERTEBRAL FRACTURE [None]
  - UNDERDOSE [None]
